FAERS Safety Report 8078360-2 (Version None)
Quarter: 2012Q1

REPORT INFORMATION
  Report Type: 
  Country: None (occurrence: None)
  Receive Date: 20120123
  Receipt Date: 20120109
  Transmission Date: 20120608
  Serious: Yes (Death, Hospitalization, Other)
  Sender: FDA-Public Use
  Company Number: 2012MA000358

PATIENT
  Age: 80 Year
  Sex: Male
  Weight: 78.0187 kg

DRUGS (16)
  1. COUMADIN [Concomitant]
  2. GLIMEPIRIDE [Concomitant]
  3. FOLIC ACID [Concomitant]
  4. FLOMAX [Concomitant]
  5. CARVEDILOL [Concomitant]
  6. PRILOSEC [Concomitant]
  7. VASOTEC [Concomitant]
  8. LEVAQUIN [Concomitant]
  9. LEVOXYL [Concomitant]
  10. INSULIN [Concomitant]
  11. CLONIDINE [Concomitant]
  12. LISINOPRIL [Concomitant]
  13. DIGOXIN [Suspect]
     Dosage: PO
     Route: 048
     Dates: start: 20021101, end: 20080101
  14. LASIX [Concomitant]
  15. ASPIRIN [Concomitant]
  16. NORVASC [Concomitant]

REACTIONS (67)
  - ANAEMIA [None]
  - TYPE 2 DIABETES MELLITUS [None]
  - URINARY RETENTION [None]
  - FALL [None]
  - EPISTAXIS [None]
  - TOXICITY TO VARIOUS AGENTS [None]
  - SYNCOPE [None]
  - LEFT VENTRICULAR HYPERTROPHY [None]
  - HELICOBACTER INFECTION [None]
  - GAIT DISTURBANCE [None]
  - URINARY HESITATION [None]
  - DIZZINESS [None]
  - AORTIC VALVE INCOMPETENCE [None]
  - TOOTH EXTRACTION [None]
  - WEIGHT DECREASED [None]
  - CALCULUS BLADDER [None]
  - CATARACT OPERATION [None]
  - OEDEMA [None]
  - URINARY TRACT OBSTRUCTION [None]
  - COR PULMONALE CHRONIC [None]
  - RENAL CYST [None]
  - LEFT ATRIAL DILATATION [None]
  - MITRAL VALVE CALCIFICATION [None]
  - TRICUSPID VALVE INCOMPETENCE [None]
  - EXOSTOSIS [None]
  - LOBAR PNEUMONIA [None]
  - BLADDER DILATATION [None]
  - OSTEOARTHRITIS [None]
  - ATAXIA [None]
  - MULTIPLE MYELOMA [None]
  - REFUSAL OF TREATMENT BY PATIENT [None]
  - DISEASE PROGRESSION [None]
  - ELECTROCARDIOGRAM T WAVE ABNORMAL [None]
  - PRESYNCOPE [None]
  - ATRIAL FIBRILLATION [None]
  - HYPERTENSION [None]
  - BLADDER NECK OBSTRUCTION [None]
  - BENIGN PROSTATIC HYPERPLASIA [None]
  - GASTRITIS [None]
  - POOR QUALITY SLEEP [None]
  - RENAL FAILURE [None]
  - INTRAOCULAR LENS IMPLANT [None]
  - PLEURAL EFFUSION [None]
  - NORMOCHROMIC NORMOCYTIC ANAEMIA [None]
  - MOUTH HAEMORRHAGE [None]
  - DYSURIA [None]
  - BRADYCARDIA [None]
  - RENAL FAILURE ACUTE [None]
  - CHOLELITHIASIS [None]
  - IATROGENIC INJURY [None]
  - VENTRICULAR HYPOKINESIA [None]
  - HAEMOPTYSIS [None]
  - ELECTROCARDIOGRAM ST SEGMENT ELEVATION [None]
  - HAEMORRHAGE [None]
  - DEATH OF RELATIVE [None]
  - HYPOTHYROIDISM [None]
  - ELECTROCARDIOGRAM ABNORMAL [None]
  - AORTIC ARTERIOSCLEROSIS [None]
  - MITRAL VALVE INCOMPETENCE [None]
  - CALCULUS URINARY [None]
  - ASTHENIA [None]
  - NOCTURIA [None]
  - HYPOTENSION [None]
  - DUODENITIS [None]
  - RENAL FAILURE CHRONIC [None]
  - ARRHYTHMIA [None]
  - BLOOD PRESSURE INCREASED [None]
